FAERS Safety Report 4279301-6 (Version None)
Quarter: 2004Q1

REPORT INFORMATION
  Report Type: 
  Country: None (occurrence: None)
  Receive Date: 20040126
  Receipt Date: 20040126
  Transmission Date: 20041129
  Serious: Yes (Other)
  Sender: FDA-Public Use
  Company Number: None

PATIENT
  Age: 55 Year
  Sex: Male
  Weight: 89.4 kg

DRUGS (10)
  1. OXBUTYNIN [Suspect]
  2. TOLTERODINE TARTRATE [Concomitant]
  3. SILDENAFIL CITRATE [Concomitant]
  4. SIMVASTATIN [Concomitant]
  5. TERAZOSIN HCL [Concomitant]
  6. CYCLOBENZAPRINE HCL [Concomitant]
  7. VENLAFAXINE HCL [Concomitant]
  8. CODEINE/ACETAMINOPHEN [Concomitant]
  9. SILDENAFIL CITRATE [Concomitant]
  10. TERAZOSIN HCL [Concomitant]

REACTIONS (1)
  - DRY MOUTH [None]
